FAERS Safety Report 17886698 (Version 2)
Quarter: 2020Q3

REPORT INFORMATION
  Report Type: Report from Study
  Country: US (occurrence: US)
  Receive Date: 20200611
  Receipt Date: 20200813
  Transmission Date: 20201103
  Serious: No
  Sender: FDA-Public Use
  Company Number: NVSC2020US163250

PATIENT
  Age: 77 Year
  Sex: Female

DRUGS (2)
  1. XIIDRA [Suspect]
     Active Substance: LIFITEGRAST
     Indication: PRODUCT USED FOR UNKNOWN INDICATION
     Dosage: 2.5 MG, ONCE2SDO
     Route: 047
     Dates: start: 20200516
  2. XIIDRA [Suspect]
     Active Substance: LIFITEGRAST
     Dosage: 5 ML, QD
     Route: 047
     Dates: start: 20200520, end: 20200811

REACTIONS (4)
  - Vision blurred [Unknown]
  - Visual impairment [Unknown]
  - Eye pruritus [Unknown]
  - Eye irritation [Unknown]

NARRATIVE: CASE EVENT DATE: 20200723
